FAERS Safety Report 26131809 (Version 1)
Quarter: 2025Q4

REPORT INFORMATION
  Report Type: Spontaneous
  Country: EU (occurrence: EU)
  Receive Date: 20251208
  Receipt Date: 20251208
  Transmission Date: 20260118
  Serious: Yes (Other)
  Sender: TEVA
  Company Number: EU-TEVA-VS-3399150

PATIENT
  Age: 77 Year
  Sex: Female

DRUGS (1)
  1. ALENDRONAT [Suspect]
     Active Substance: ALENDRONATE SODIUM
     Indication: Osteoporosis
     Dosage: WEEKLY TABLET
     Route: 065

REACTIONS (1)
  - Pathological fracture [Unknown]
